FAERS Safety Report 18783578 (Version 1)
Quarter: 2021Q1

REPORT INFORMATION
  Report Type: Report from Study
  Country: DE (occurrence: DE)
  Receive Date: 20210120
  Receipt Date: 20210120
  Transmission Date: 20210419
  Serious: Yes (Life-Threatening, Hospitalization, Other)
  Sender: FDA-Public Use
  Company Number: DE-TAKEDA-SPV1-2007-04997

PATIENT
  Age: 19 Year
  Sex: Male
  Weight: 40 kg

DRUGS (14)
  1. ATROVENT [Concomitant]
     Active Substance: IPRATROPIUM BROMIDE
     Indication: RESPIRATORY DISORDER
     Dosage: 10 GTT, AS REQ^D
     Route: 055
  2. PIPAMPERON [Concomitant]
     Active Substance: PIPAMPERONE HYDROCHLORIDE
     Dosage: UNK
     Route: 048
     Dates: start: 2010
  3. LASIX [Concomitant]
     Active Substance: FUROSEMIDE
     Indication: OEDEMA
     Dosage: 5 MG, 1X/DAY:QD
     Route: 048
     Dates: start: 200711
  4. SALBUTAMOL [Concomitant]
     Active Substance: ALBUTEROL
     Indication: RESPIRATORY FAILURE
     Dosage: 1.5 MG, 3X/DAY:TID
     Route: 055
  5. PULMICORT TURBUHALER [Concomitant]
     Active Substance: BUDESONIDE
     Indication: RESPIRATORY DISORDER
  6. CLONIDIN [Concomitant]
     Active Substance: CLONIDINE
     Dosage: UNK
     Route: 065
     Dates: start: 200711, end: 200711
  7. PULMICORT TURBUHALER [Concomitant]
     Active Substance: BUDESONIDE
     Indication: RESPIRATORY FAILURE
     Dosage: 1 MG, 3X/DAY:TID
     Route: 055
     Dates: start: 2009
  8. LEVOMEPROMAZIN [LEVOMEPROMAZINE] [Concomitant]
     Active Substance: LEVOMEPROMAZINE
     Indication: SEDATION COMPLICATION
     Dosage: UNK
     Route: 065
     Dates: start: 200711, end: 200711
  9. PIPAMPERON [Concomitant]
     Active Substance: PIPAMPERONE HYDROCHLORIDE
     Indication: BEHAVIOUR DISORDER
     Dosage: 5 ML, 1X/DAY:QD
     Route: 048
     Dates: start: 2009, end: 2010
  10. SALBUTAMOL [Concomitant]
     Active Substance: ALBUTEROL
     Indication: RESPIRATORY DISORDER
     Dosage: 10 GTT, AS REQ^D
     Route: 055
  11. FUROSEMIDE. [Concomitant]
     Active Substance: FUROSEMIDE
     Indication: GASTROINTESTINAL DISORDER
     Dosage: UNK
     Route: 048
     Dates: start: 2009
  12. BUDESONIDE. [Concomitant]
     Active Substance: BUDESONIDE
     Indication: RESPIRATORY DISORDER
     Dosage: UNK
     Route: 055
     Dates: start: 2009
  13. IDURSULFASE [Suspect]
     Active Substance: IDURSULFASE
     Indication: MUCOPOLYSACCHARIDOSIS II
     Dosage: 24 MILLIGRAM, 1/WEEK
     Route: 041
     Dates: start: 20070410
  14. ATROVENT [Concomitant]
     Active Substance: IPRATROPIUM BROMIDE
     Indication: OBSTRUCTIVE AIRWAYS DISORDER
     Dosage: 0.5 MG, 3X/DAY:TID
     Route: 055

REACTIONS (9)
  - Tracheomalacia [Recovered/Resolved]
  - Bradycardia [Recovered/Resolved]
  - Cardiac arrest [Recovered/Resolved]
  - Restlessness [Recovered/Resolved]
  - Respiratory failure [Recovered/Resolved]
  - Abdominal pain [Recovered/Resolved]
  - Device occlusion [Recovered/Resolved]
  - Pneumonia [Recovered/Resolved]
  - Tremor [Recovered/Resolved]

NARRATIVE: CASE EVENT DATE: 20070416
